FAERS Safety Report 9421422 (Version 2)
Quarter: 2013Q3

REPORT INFORMATION
  Report Type: Report from Study
  Country: DE (occurrence: DE)
  Receive Date: 20130725
  Receipt Date: 20130814
  Transmission Date: 20140515
  Serious: Yes (Other)
  Sender: FDA-Public Use
  Company Number: DE-ROCHE-1251598

PATIENT
  Age: 75 Year
  Sex: Male
  Weight: 95 kg

DRUGS (3)
  1. RITUXIMAB [Suspect]
     Indication: CHRONIC LYMPHOCYTIC LEUKAEMIA
     Dosage: LAST DOSE PRIOR TO SAE: 09/JUL/2013.
     Route: 042
     Dates: start: 20130708
  2. RITUXIMAB [Suspect]
     Dosage: DRUG RESTARTED
     Route: 065
  3. BENDAMUSTINE [Suspect]
     Indication: CHRONIC LYMPHOCYTIC LEUKAEMIA
     Dosage: LAST DOSE PRIOR TO SAE: 09/JUL/2013.
     Route: 042
     Dates: start: 20130708

REACTIONS (3)
  - Rash generalised [Not Recovered/Not Resolved]
  - Stevens-Johnson syndrome [Not Recovered/Not Resolved]
  - Skin exfoliation [Not Recovered/Not Resolved]
